FAERS Safety Report 4514828-0 (Version None)
Quarter: 2004Q4

REPORT INFORMATION
  Report Type: 
  Country: None (occurrence: None)
  Receive Date: 20041126
  Receipt Date: 20041111
  Transmission Date: 20050328
  Serious: Yes (Hospitalization, Disabling)
  Sender: FDA-Public Use
  Company Number: 2004AP04730

PATIENT
  Age: 69 Year
  Sex: Female

DRUGS (11)
  1. IRESSA [Suspect]
     Indication: LUNG ADENOCARCINOMA
     Dosage: 250 MG DAILY PO
     Route: 048
     Dates: start: 20040728, end: 20040826
  2. IRESSA [Suspect]
     Indication: NON-SMALL CELL LUNG CANCER
     Dosage: 250 MG DAILY PO
     Route: 048
     Dates: start: 20040728, end: 20040826
  3. ALMARL [Suspect]
     Indication: HYPERTENSION
     Dosage: 20 MG DAILY PO
     Route: 048
     Dates: start: 19880620, end: 20040828
  4. HERBESSER ^DELTA^ [Suspect]
     Indication: HYPERTENSION
     Dosage: 200 MG DAILY PO
     Route: 048
     Dates: start: 20020109, end: 20040228
  5. INNOLET 30R [Concomitant]
  6. DOGMATYL [Concomitant]
  7. URSOSAN [Concomitant]
  8. INHIBACE ^ANDREU^ [Concomitant]
  9. LENDORMIN [Concomitant]
  10. ZANTAC [Concomitant]
  11. NO MATCH [Concomitant]

REACTIONS (10)
  - ATRIOVENTRICULAR BLOCK [None]
  - BLOOD PRESSURE DECREASED [None]
  - DEPRESSED LEVEL OF CONSCIOUSNESS [None]
  - FALL [None]
  - HEART RATE DECREASED [None]
  - HEPATIC FUNCTION ABNORMAL [None]
  - JAUNDICE [None]
  - MARKEDLY REDUCED DIETARY INTAKE [None]
  - PNEUMONIA [None]
  - SINUS ARREST [None]
